FAERS Safety Report 8681350 (Version 2)
Quarter: 2013Q1

REPORT INFORMATION
  Report Type: Spontaneous
  Country: US (occurrence: US)
  Receive Date: 20120725
  Receipt Date: 20130227
  Transmission Date: 20140127
  Serious: No
  Sender: FDA-Public Use
  Company Number: US-PFIZER INC-2012178813

PATIENT
  Age: 56 Year
  Sex: Female
  Weight: 77.1 kg

DRUGS (14)
  1. LYRICA [Suspect]
     Indication: FIBROMYALGIA
     Dosage: 225 MG, 3X/DAY
     Route: 048
     Dates: end: 201204
  2. LYRICA [Suspect]
     Dosage: 225 MG, 3X/DAY
     Route: 048
     Dates: start: 201302
  3. MOTRIN [Suspect]
     Indication: PAIN
     Dosage: 800 MG, AS NEEDED
  4. RISPERIDONE [Concomitant]
     Indication: SLEEP DISORDER
     Dosage: 1 MG, AS NEEDED
  5. DIAZEPAM [Concomitant]
     Indication: ANXIETY
     Dosage: 5 MG, AS NEEDED
  6. LISINOPRIL [Concomitant]
     Indication: BLOOD PRESSURE ABNORMAL
     Dosage: 5 MG/DAY
  7. OMEPRAZOLE [Concomitant]
     Indication: GASTROOESOPHAGEAL REFLUX DISEASE
     Dosage: 20 MG/DAY
  8. CHONDROITIN/GLUCOSAMINE [Concomitant]
     Indication: ARTHROPATHY
     Dosage: UNK, 2X/DAY
  9. MAGNESIUM [Concomitant]
     Indication: BONE DISORDER
     Dosage: 400 MG, 2X/DAY
  10. IRON [Concomitant]
     Dosage: 65 MG, 2X/DAY
  11. COLACE [Concomitant]
     Indication: CONSTIPATION
     Dosage: UNK
  12. TRILEPTAL [Concomitant]
     Indication: BIPOLAR DISORDER
     Dosage: ONE TABLET OF 200MG IN MORNING AND TWO TABLETS OF 200 MG AT NIGHT
     Route: 048
  13. PREMARIN [Concomitant]
     Dosage: 0.1 MG, UNK
  14. LOPRESSOR [Concomitant]
     Indication: BLOOD PRESSURE ABNORMAL
     Dosage: UNK

REACTIONS (5)
  - Drug ineffective [Unknown]
  - Swelling [Not Recovered/Not Resolved]
  - Pain [Not Recovered/Not Resolved]
  - Vision blurred [Unknown]
  - Fatigue [Unknown]
